FAERS Safety Report 7829472-7 (Version None)
Quarter: 2011Q4

REPORT INFORMATION
  Report Type: 
  Country: None (occurrence: None)
  Receive Date: 20111020
  Receipt Date: 20111006
  Transmission Date: 20120403
  Serious: Yes (Hospitalization)
  Sender: FDA-Public Use
  Company Number: DE-ROCHE-1002935

PATIENT
  Sex: Female
  Weight: 73 kg

DRUGS (3)
  1. XELODA [Suspect]
     Indication: COLON CANCER
     Route: 065
  2. XELODA [Suspect]
     Route: 065
     Dates: start: 20110616, end: 20110629
  3. MCP [Concomitant]
     Indication: NAUSEA
     Route: 048

REACTIONS (6)
  - FALL [None]
  - DEHYDRATION [None]
  - HAEMATOMA [None]
  - THROMBOSIS [None]
  - DIARRHOEA [None]
  - SYNCOPE [None]
